FAERS Safety Report 8088392-6 (Version None)
Quarter: 2012Q1

REPORT INFORMATION
  Report Type: 
  Country: None (occurrence: None)
  Receive Date: 20120128
  Receipt Date: 20110531
  Transmission Date: 20120608
  Serious: No
  Sender: FDA-Public Use
  Company Number: US-ABBOTT-11P-163-0729548-00

PATIENT
  Age: 23 Year
  Sex: Male

DRUGS (2)
  1. VITAMIN D [Concomitant]
     Indication: PRODUCT USED FOR UNKNOWN INDICATION
  2. HUMIRA [Suspect]
     Indication: CROHN'S DISEASE
     Dates: start: 20101223

REACTIONS (7)
  - MYALGIA [None]
  - PRURITUS [None]
  - WRONG TECHNIQUE IN DRUG USAGE PROCESS [None]
  - INJECTION SITE SWELLING [None]
  - DEVICE MALFUNCTION [None]
  - RASH PRURITIC [None]
  - INJECTION SITE PAIN [None]
